FAERS Safety Report 9702626 (Version 2)
Quarter: 2014Q1

REPORT INFORMATION
  Report Type: Spontaneous
  Country: US (occurrence: US)
  Receive Date: 20131121
  Receipt Date: 20140114
  Transmission Date: 20141002
  Serious: Yes (Death, Other)
  Sender: FDA-Public Use
  Company Number: US-GILEAD-2013-0088031

PATIENT
  Age: 29 Year
  Sex: Female

DRUGS (11)
  1. CAYSTON [Suspect]
     Indication: CYSTIC FIBROSIS
     Dosage: 75 MG, UNK
     Route: 055
     Dates: start: 20110407
  2. CAYSTON [Suspect]
     Indication: PSEUDOMONAS INFECTION
  3. ALBUTEROL                          /00139501/ [Concomitant]
  4. CELEXA                             /00582602/ [Concomitant]
  5. PULMOZYME [Concomitant]
  6. VITAMIN D                          /00107901/ [Concomitant]
  7. INSULIN LISPRO [Concomitant]
  8. INSULIN NPH                        /01223208/ [Concomitant]
  9. CREON [Concomitant]
  10. HYPERNOL [Concomitant]
  11. AMBIEN [Concomitant]

REACTIONS (1)
  - Cystic fibrosis [Fatal]
